FAERS Safety Report 4880504-8 (Version None)
Quarter: 2006Q1

REPORT INFORMATION
  Report Type: 
  Country: None (occurrence: None)
  Receive Date: 20060113
  Receipt Date: 20050112
  Transmission Date: 20060701
  Serious: Yes (Hospitalization, Other)
  Sender: FDA-Public Use
  Company Number: US-MERCK-0501USA02222

PATIENT
  Age: 47 Year
  Sex: Female
  Weight: 64 kg

DRUGS (2)
  1. VIOXX [Suspect]
     Indication: ARTHRITIS
     Route: 048
     Dates: start: 20000101, end: 20030101
  2. VIOXX [Suspect]
     Indication: ARTHRALGIA
     Route: 048
     Dates: start: 20000101, end: 20030101

REACTIONS (17)
  - ANEURYSM [None]
  - ARTHROPATHY [None]
  - BACK DISORDER [None]
  - CAROTID ARTERY ANEURYSM [None]
  - CEREBROVASCULAR ACCIDENT [None]
  - CHEST INJURY [None]
  - CHEST PAIN [None]
  - EMPHYSEMA [None]
  - LAPAROSCOPIC SURGERY [None]
  - MENINGITIS [None]
  - MYOCARDIAL INFARCTION [None]
  - PARALYSIS [None]
  - PNEUMONIA [None]
  - PRESCRIBED OVERDOSE [None]
  - SPINAL CORD DISORDER [None]
  - SURGERY [None]
  - TRICUSPID VALVE DISEASE [None]
